FAERS Safety Report 6534995-7 (Version None)
Quarter: 2010Q1

REPORT INFORMATION
  Report Type: 
  Country: None (occurrence: None)
  Receive Date: 20100112
  Receipt Date: 20100106
  Transmission Date: 20100710
  Serious: Yes (Hospitalization)
  Sender: FDA-Public Use
  Company Number: US-MERCK-1001USA00305

PATIENT
  Sex: Female

DRUGS (1)
  1. MAXALT [Suspect]
     Indication: MIGRAINE
     Route: 048
     Dates: start: 20080701, end: 20081001

REACTIONS (3)
  - DRUG EXPOSURE DURING PREGNANCY [None]
  - MIGRAINE [None]
  - WRONG TECHNIQUE IN DRUG USAGE PROCESS [None]
